FAERS Safety Report 6739000-5 (Version None)
Quarter: 2010Q2

REPORT INFORMATION
  Report Type: 
  Country: None (occurrence: None)
  Receive Date: 20100524
  Receipt Date: 20100524
  Transmission Date: 20101027
  Serious: Yes (Other)
  Sender: FDA-Public Use
  Company Number: None

PATIENT
  Age: 40 Year
  Sex: Female
  Weight: 80.7403 kg

DRUGS (1)
  1. CELEXA [Suspect]
     Indication: DEPRESSIVE SYMPTOM
     Dates: start: 20090813, end: 20100430

REACTIONS (1)
  - PHOTODERMATOSIS [None]
